FAERS Safety Report 4407582-4 (Version None)
Quarter: 2004Q3

REPORT INFORMATION
  Report Type: 
  Country: None (occurrence: None)
  Receive Date: 20040726
  Receipt Date: 20040210
  Transmission Date: 20050211
  Serious: Yes (Hospitalization)
  Sender: FDA-Public Use
  Company Number: FR-ROCHE-358445

PATIENT
  Age: 35 Year
  Sex: Male
  Weight: 69 kg

DRUGS (6)
  1. ENFUVIRTIDE [Suspect]
     Indication: HIV INFECTION
     Route: 058
     Dates: start: 20021125, end: 20040122
  2. AGENERASE [Concomitant]
     Dates: start: 20020408
  3. KALETRA [Concomitant]
     Dates: start: 20021119
  4. ZERIT [Concomitant]
     Dosage: TOTAL DAILY DOSE ALSO REPORTED AS 2.
     Dates: start: 20021119
  5. WELLVONE [Concomitant]
     Dosage: TOTAL DAILY DOSE ALSO REPORTED AS 2.
     Dates: start: 20020915
  6. NORVIR [Concomitant]
     Dosage: TOTAL DAILY DOSE REPORTED AS 2.
     Dates: start: 20020408

REACTIONS (5)
  - BLOOD TRIGLYCERIDES INCREASED [None]
  - CARDIOMEGALY [None]
  - MYOCARDIAL INFARCTION [None]
  - PAIN [None]
  - PRODUCTIVE COUGH [None]
